FAERS Safety Report 11892348 (Version 1)
Quarter: 2016Q1

REPORT INFORMATION
  Report Type: Report from Study
  Country: FR (occurrence: FR)
  Receive Date: 20160106
  Receipt Date: 20160106
  Transmission Date: 20160526
  Serious: Yes (Other)
  Sender: FDA-Public Use
  Company Number: FR-BAXTER-2016BAX000320

PATIENT
  Sex: Female

DRUGS (10)
  1. ENDOXAN 1000 MG, POUDRE POUR SOLUTIONINJECTABLE [Suspect]
     Active Substance: CYCLOPHOSPHAMIDE
     Indication: OVARIAN CANCER
     Dosage: DAY 1
     Route: 065
  2. TOPOTECAN [Suspect]
     Active Substance: TOPOTECAN\TOPOTECAN HYDROCHLORIDE
     Indication: OVARIAN CANCER
     Dosage: AFTER DILUTION TO A FINAL CONCENTRATION OF 25 50 MICROGRAM PER ML
     Route: 041
  3. TOPOTECAN [Suspect]
     Active Substance: TOPOTECAN\TOPOTECAN HYDROCHLORIDE
     Indication: BONE MARROW CONDITIONING REGIMEN
     Dosage: AFTER DILUTION TO A FINAL CONCENTRATION OF 25 50 MICROGRAM PER ML
     Route: 041
  4. TOPOTECAN [Suspect]
     Active Substance: TOPOTECAN\TOPOTECAN HYDROCHLORIDE
     Dosage: AFTER DILUTION TO A FINAL CONCENTRATION OF 25 50 MICROGRAM PER ML
     Route: 041
  5. ENDOXAN 1000 MG, POUDRE POUR SOLUTIONINJECTABLE [Suspect]
     Active Substance: CYCLOPHOSPHAMIDE
     Indication: BONE MARROW CONDITIONING REGIMEN
     Dosage: DAY 1 AND 2, HIGH DOSE THERAPY
     Route: 065
  6. TOPOTECAN [Suspect]
     Active Substance: TOPOTECAN\TOPOTECAN HYDROCHLORIDE
     Dosage: AFTER DILUTION TO A FINAL CONCENTRATION OF 25 50 MICROGRAM PER ML
     Route: 041
  7. TOPOTECAN [Suspect]
     Active Substance: TOPOTECAN\TOPOTECAN HYDROCHLORIDE
     Dosage: AFTER DILUTION TO A FINAL CONCENTRATION OF 25 50 MICROGRAM PER ML
     Route: 041
  8. FILGRASTIM [Suspect]
     Active Substance: FILGRASTIM
     Indication: BONE MARROW CONDITIONING REGIMEN
  9. CISPLATIN. [Concomitant]
     Active Substance: CISPLATIN
     Indication: OVARIAN CANCER
     Route: 065
  10. FILGRASTIM [Suspect]
     Active Substance: FILGRASTIM
     Indication: OVARIAN CANCER
     Dosage: FROM DAY 6 TO  TIME OF APHERESIS
     Route: 065

REACTIONS (1)
  - Therapy responder [Unknown]
